FAERS Safety Report 7542891-1 (Version None)
Quarter: 2011Q2

REPORT INFORMATION
  Report Type: 
  Country: None (occurrence: None)
  Receive Date: 20110613
  Receipt Date: 20110531
  Transmission Date: 20111010
  Serious: Yes (Disabling)
  Sender: FDA-Public Use
  Company Number: PHHY2011AR48022

PATIENT
  Sex: Female

DRUGS (1)
  1. EXELON [Suspect]
     Indication: AMNESIA
     Dosage: 1.5 MG DAILY
     Dates: start: 20110401

REACTIONS (3)
  - PAIN [None]
  - FALL [None]
  - SKELETAL INJURY [None]
